FAERS Safety Report 7439631-3 (Version None)
Quarter: 2011Q2

REPORT INFORMATION
  Report Type: 
  Country: None (occurrence: None)
  Receive Date: 20110427
  Receipt Date: 20110418
  Transmission Date: 20111010
  Serious: Yes (Other)
  Sender: FDA-Public Use
  Company Number: CA-TEVA-277847USA

PATIENT
  Age: 62 Year
  Sex: Male
  Weight: 88 kg

DRUGS (17)
  1. CLOPIDOGREL [Concomitant]
  2. ACETYLSALICYLIC ACID SRT [Concomitant]
  3. INSULIN [Concomitant]
  4. ERGOCALCIFEROL [Concomitant]
  5. CEFAZOLIN [Concomitant]
  6. ATENOLOL [Concomitant]
  7. BUPROPION [Concomitant]
  8. OXYCET [Concomitant]
  9. TERAZOSIN HYDROCHLORIDE [Suspect]
     Dosage: 2.5 MILLIGRAM;
     Route: 048
  10. MORPHINE [Concomitant]
  11. FUROSEMIDE [Concomitant]
  12. FUSIDIC ACID [Concomitant]
  13. SENNA ALEXANDRINA [Concomitant]
  14. INSULIN [Concomitant]
  15. METFORMIN [Concomitant]
  16. OXAZEPAM [Concomitant]
  17. PERINDOPRIL [Concomitant]

REACTIONS (2)
  - HALLUCINATION, VISUAL [None]
  - AGITATION [None]
